FAERS Safety Report 10167394 (Version 2)
Quarter: 2014Q2

REPORT INFORMATION
  Report Type: Spontaneous
  Country: US (occurrence: US)
  Receive Date: 20140512
  Receipt Date: 20140514
  Transmission Date: 20141212
  Serious: Yes (Hospitalization, Other)
  Sender: FDA-Public Use
  Company Number: US-RB-065607-14

PATIENT
  Age: 57 Year
  Sex: Male

DRUGS (2)
  1. DELSYM [Suspect]
     Indication: COUGH
     Dosage: AMOUNT USED: 2 DOSES. ONE DOSE ON 08-APR-2014 AND SECOND DOSE ON 09-APR-2014.
     Dates: start: 20140408
  2. DELSYM [Suspect]
     Indication: COUGH
     Dosage: AMOUNT USED: 2 DOSES. ONE DOSE ON 08-APR-2014 AND SECOND DOSE ON 09-APR-2014.
     Dates: start: 20140408

REACTIONS (7)
  - Hypotension [Recovered/Resolved]
  - Presyncope [Recovered/Resolved]
  - Unevaluable event [Recovered/Resolved]
  - Musculoskeletal stiffness [Recovered/Resolved]
  - Unevaluable event [Recovered/Resolved]
  - Convulsion [Recovered/Resolved]
  - Dizziness [Recovered/Resolved]
